FAERS Safety Report 16173318 (Version 1)
Quarter: 2019Q2

REPORT INFORMATION
  Report Type: Spontaneous
  Country: US (occurrence: US)
  Receive Date: 20190408
  Receipt Date: 20190408
  Transmission Date: 20190711
  Serious: No
  Sender: FDA-Public Use
  Company Number: None

PATIENT
  Sex: Male

DRUGS (1)
  1. METHYLPHENIDATE ER 54 MG [Suspect]
     Active Substance: METHYLPHENIDATE

REACTIONS (3)
  - Therapy non-responder [None]
  - Product substitution issue [None]
  - Irritability [None]
